FAERS Safety Report 5132419-8 (Version None)
Quarter: 2006Q4

REPORT INFORMATION
  Report Type: 
  Country: None (occurrence: None)
  Receive Date: 20061023
  Receipt Date: 20061017
  Transmission Date: 20070319
  Serious: Yes (Death)
  Sender: FDA-Public Use
  Company Number: US-BRISTOL-MYERS SQUIBB COMPANY-13543541

PATIENT
  Age: 58 Year
  Sex: Female
  Weight: 64 kg

DRUGS (12)
  1. PACLITAXEL [Suspect]
     Indication: SMALL CELL LUNG CANCER STAGE UNSPECIFIED
     Route: 042
     Dates: start: 20060701
  2. DEXAMETHASONE TAB [Concomitant]
     Indication: PREMEDICATION
  3. DIPHENHYDRAMINE HCL [Concomitant]
     Indication: PREMEDICATION
  4. SODIUM CHLORIDE [Concomitant]
     Indication: PREMEDICATION
  5. EPINEPHRINE [Concomitant]
     Indication: PREMEDICATION
  6. CARBOPLATIN [Concomitant]
  7. MORPHINE [Concomitant]
  8. LORCET-HD [Concomitant]
  9. POTASSIUM [Concomitant]
  10. THYROID SUPPLEMENT [Concomitant]
  11. TEMAZEPAM [Concomitant]
  12. IBUPROFEN [Concomitant]

REACTIONS (1)
  - DEATH [None]
